FAERS Safety Report 16257729 (Version 2)
Quarter: 2019Q2

REPORT INFORMATION
  Report Type: Spontaneous
  Country: US (occurrence: US)
  Receive Date: 20190430
  Receipt Date: 20190517
  Transmission Date: 20190711
  Serious: Yes (Hospitalization, Other)
  Sender: FDA-Public Use
  Company Number: US-PFIZER INC-2019177212

PATIENT
  Age: 66 Year
  Sex: Female
  Weight: 64 kg

DRUGS (2)
  1. CADUET [Suspect]
     Active Substance: AMLODIPINE BESYLATE\ATORVASTATIN CALCIUM
     Dosage: UNK
  2. CADUET [Suspect]
     Active Substance: AMLODIPINE BESYLATE\ATORVASTATIN CALCIUM
     Indication: BLOOD PRESSURE ABNORMAL
     Dosage: UNK

REACTIONS (11)
  - Renal failure [Unknown]
  - Muscular weakness [Unknown]
  - Emotional disorder [Unknown]
  - Discomfort [Unknown]
  - Feeling abnormal [Unknown]
  - Dyspnoea [Unknown]
  - Disturbance in attention [Unknown]
  - Facial pain [Unknown]
  - Headache [Unknown]
  - Cerebrovascular accident [Unknown]
  - Retching [Unknown]
